FAERS Safety Report 8425726-4 (Version None)
Quarter: 2012Q2

REPORT INFORMATION
  Report Type: 
  Country: None (occurrence: None)
  Receive Date: 20120611
  Receipt Date: 20120528
  Transmission Date: 20120825
  Serious: Yes (Other)
  Sender: FDA-Public Use
  Company Number: CN-RANBAXY-2012R1-56922

PATIENT
  Age: 61 Year
  Sex: Female

DRUGS (2)
  1. VALPROATE SODIUM [Concomitant]
     Indication: EPILEPSY
     Dosage: UNK
     Route: 065
     Dates: start: 20100301
  2. OXCARBAZEPINE [Suspect]
     Indication: EPILEPSY
     Dosage: 900MG DAILY
     Route: 048
     Dates: start: 20100501

REACTIONS (3)
  - DRUG HYPERSENSITIVITY [None]
  - RASH MACULO-PAPULAR [None]
  - RASH ERYTHEMATOUS [None]
